FAERS Safety Report 4949203-8 (Version None)
Quarter: 2006Q1

REPORT INFORMATION
  Report Type: 
  Country: None (occurrence: None)
  Receive Date: 20060321
  Receipt Date: 20060105
  Transmission Date: 20060701
  Serious: Yes (Other)
  Sender: FDA-Public Use
  Company Number: US-ROCHE-431283

PATIENT
  Sex: Female

DRUGS (11)
  1. BONIVA [Suspect]
     Indication: DRUG USE FOR UNKNOWN INDICATION
     Route: 048
     Dates: start: 20060102, end: 20060201
  2. CALCIUM NOS [Suspect]
     Indication: DRUG USE FOR UNKNOWN INDICATION
     Route: 065
  3. ACIPHEX [Concomitant]
     Route: 048
  4. CALCIUM/VITAMIN D [Concomitant]
     Route: 048
  5. ARIMIDEX [Concomitant]
  6. TAMOXIFEN CITRATE [Concomitant]
  7. TOPROL-XL [Concomitant]
     Route: 048
  8. AMBIEN [Concomitant]
     Indication: SOMNOLENCE
     Route: 048
  9. TAXOTERE [Concomitant]
  10. ESTRACE [Concomitant]
     Route: 067
  11. RESTASIS [Concomitant]

REACTIONS (18)
  - ABDOMINAL DISCOMFORT [None]
  - ABDOMINAL PAIN UPPER [None]
  - ASTHENIA [None]
  - BONE PAIN [None]
  - CHEST PAIN [None]
  - CONSTIPATION [None]
  - DEAFNESS UNILATERAL [None]
  - FALL [None]
  - FATIGUE [None]
  - FLATULENCE [None]
  - HYPOAESTHESIA [None]
  - MUSCULOSKELETAL STIFFNESS [None]
  - MYALGIA [None]
  - NERVOUSNESS [None]
  - POLLAKIURIA [None]
  - TENDONITIS [None]
  - URINARY INCONTINENCE [None]
  - VISUAL ACUITY REDUCED [None]
